FAERS Safety Report 4771666-1 (Version None)
Quarter: 2005Q3

REPORT INFORMATION
  Report Type: 
  Country: None (occurrence: None)
  Receive Date: 20050916
  Receipt Date: 20050909
  Transmission Date: 20060218
  Serious: Yes (Other)
  Sender: FDA-Public Use
  Company Number: PHFR2005GB03035

PATIENT
  Sex: Female

DRUGS (6)
  1. FEMARA [Suspect]
     Indication: BREAST CANCER
     Dosage: 2.5 MG, QD
     Route: 048
  2. INSULIN MIXTARD [Concomitant]
     Route: 065
  3. ATORVASTATIN [Concomitant]
     Route: 065
  4. DICLOFENAC [Concomitant]
     Route: 065
  5. DIXARIT [Concomitant]
     Route: 065
  6. ZOPICLONE [Concomitant]
     Route: 065

REACTIONS (1)
  - HYPOGLYCAEMIA [None]
